FAERS Safety Report 7026361-5 (Version None)
Quarter: 2010Q4

REPORT INFORMATION
  Report Type: 
  Country: None (occurrence: None)
  Receive Date: 20101004
  Receipt Date: 20100923
  Transmission Date: 20110411
  Serious: Yes (Hospitalization, Other)
  Sender: FDA-Public Use
  Company Number: US-ELI_LILLY_AND_COMPANY-US201009000760

PATIENT
  Sex: Male
  Weight: 80.726 kg

DRUGS (14)
  1. BYETTA [Suspect]
     Indication: TYPE 2 DIABETES MELLITUS
     Dosage: 5 UG, UNKNOWN
     Dates: start: 20100218, end: 20100318
  2. BYETTA [Suspect]
     Dosage: 10 UG, UNKNOWN
     Dates: start: 20100318
  3. JANUVIA [Concomitant]
     Indication: DIABETES MELLITUS
     Dosage: 100 MG, DAILY (1/D)
     Dates: start: 20100220
  4. AMARYL [Concomitant]
     Indication: DIABETES MELLITUS
     Dosage: 4 MG, 2/D
  5. LOVAZA [Concomitant]
     Indication: HIGH DENSITY LIPOPROTEIN DECREASED
     Dosage: UNK, 2/D
  6. DIGOXIN [Concomitant]
     Indication: CARDIAC DISORDER
     Dosage: 0.25 MG, DAILY (1/D)
  7. CARVEDILOL [Concomitant]
     Indication: CARDIAC DISORDER
     Dosage: 25 MG, 2/D
  8. CADUET [Concomitant]
     Indication: BLOOD CHOLESTEROL
  9. ASPIRIN [Concomitant]
     Indication: PROPHYLAXIS
     Dosage: 81 MG, DAILY (1/D)
  10. HYDROCHLOROTHIAZIDE [Concomitant]
     Indication: BLOOD PRESSURE
     Dosage: 125 MG, DAILY (1/D)
  11. RAMIPRIL [Concomitant]
     Indication: BLOOD PRESSURE
     Dosage: 10 MG, DAILY (1/D)
  12. VITAMIN D3 [Concomitant]
     Indication: SUPPLEMENTATION THERAPY
  13. VITAMIN D3 [Concomitant]
     Dosage: 5 UG, UNK
     Route: 058
     Dates: start: 20100318
  14. VITAMIN D3 [Concomitant]
     Dosage: 10 UG, UNK
     Route: 058

REACTIONS (5)
  - BLOOD CHOLESTEROL INCREASED [None]
  - FOOD POISONING [None]
  - HYPERTRIGLYCERIDAEMIA [None]
  - PANCREATITIS [None]
  - RENAL FAILURE [None]
